FAERS Safety Report 9011547 (Version 1)
Quarter: 2013Q1

REPORT INFORMATION
  Report Type: Spontaneous
  Country: JP (occurrence: JP)
  Receive Date: 20130108
  Receipt Date: 20130108
  Transmission Date: 20140127
  Serious: Yes (Other)
  Sender: FDA-Public Use
  Company Number: JP-009507513-1301JPN002075

PATIENT
  Sex: Female

DRUGS (1)
  1. REFLEX [Suspect]
     Dosage: 7.5 MG, QD
     Route: 048

REACTIONS (2)
  - Memory impairment [Unknown]
  - Agitation [Unknown]
